FAERS Safety Report 9361075 (Version 1)
Quarter: 2013Q2

REPORT INFORMATION
  Report Type: Spontaneous
  Country: US (occurrence: None)
  Receive Date: 20130618
  Receipt Date: 20130618
  Transmission Date: 20140414
  Serious: Yes (Hospitalization)
  Sender: FDA-Public Use
  Company Number: 2013P1007537

PATIENT
  Sex: Female

DRUGS (2)
  1. ALENDRONATE [Suspect]
     Dates: start: 2005
  2. EDARBYCLOR [Suspect]

REACTIONS (1)
  - Systemic lupus erythematosus [None]
